FAERS Safety Report 6015584-X (Version None)
Quarter: 2008Q4

REPORT INFORMATION
  Report Type: 
  Country: None (occurrence: None)
  Receive Date: 20081218
  Receipt Date: 20081204
  Transmission Date: 20090506
  Serious: Yes (Hospitalization)
  Sender: FDA-Public Use
  Company Number: GB-DEXPHARM-20081423

PATIENT
  Age: 47 Year
  Sex: Female

DRUGS (5)
  1. DICLOFENAC SODIUM [Suspect]
     Route: 048
     Dates: start: 20081121, end: 20081121
  2. ASPIRIN [Suspect]
     Indication: ACUTE CORONARY SYNDROME
     Dates: start: 20081121
  3. CLOPIDOGREL [Suspect]
     Indication: ACUTE CORONARY SYNDROME
     Dates: start: 20081121
  4. AMITRIPTYLINE HCL [Concomitant]
  5. OMEPRAZOLE [Concomitant]

REACTIONS (3)
  - ACUTE CORONARY SYNDROME [None]
  - HAEMATEMESIS [None]
  - UPPER GASTROINTESTINAL HAEMORRHAGE [None]
